FAERS Safety Report 13865977 (Version 1)
Quarter: 2017Q3

REPORT INFORMATION
  Report Type: Spontaneous
  Country: US (occurrence: US)
  Receive Date: 20170814
  Receipt Date: 20170814
  Transmission Date: 20171127
  Serious: No
  Sender: FDA-Public Use
  Company Number: US-ROCHE-1186576

PATIENT
  Age: 5 Year
  Sex: Male

DRUGS (1)
  1. TAMIFLU [Suspect]
     Active Substance: OSELTAMIVIR PHOSPHATE
     Indication: INFLUENZA
     Dosage: 1.5 TEASPOONFUL
     Route: 048

REACTIONS (4)
  - Flatulence [Unknown]
  - Sleep terror [Unknown]
  - Abdominal discomfort [Unknown]
  - Abdominal pain [Unknown]
